FAERS Safety Report 9337919 (Version 1)
Quarter: 2013Q2

REPORT INFORMATION
  Report Type: Spontaneous
  Country: IT (occurrence: IT)
  Receive Date: 20130609
  Receipt Date: 20130609
  Transmission Date: 20140414
  Serious: Yes (Other)
  Sender: FDA-Public Use
  Company Number: IT-SANOFI-AVENTIS-2013SA052953

PATIENT
  Age: 85 Year
  Sex: Male

DRUGS (8)
  1. PLAVIX [Suspect]
     Indication: PRODUCT USED FOR UNKNOWN INDICATION
     Dosage: STRENGTH: 75 MG
     Route: 048
     Dates: start: 20130101, end: 20130517
  2. NEBIVOLOL HYDROCHLORIDE [Concomitant]
     Route: 065
  3. OMEPRAZOLE SODIUM [Concomitant]
     Route: 065
  4. INSULIN HUMAN REGULAR [Concomitant]
     Route: 065
  5. CARDURA [Concomitant]
     Route: 065
  6. METFORMIN [Concomitant]
     Dosage: STRENGTH: 850 MG
     Route: 065
  7. NORVASC [Concomitant]
     Dosage: STRENGTH: 10 MG
     Route: 065
  8. KARVEZIDE [Concomitant]
     Dosage: STRENGTH: 150 MG/12.5 MG
     Route: 065

REACTIONS (2)
  - Convulsion [Recovering/Resolving]
  - Haematemesis [Recovering/Resolving]
